FAERS Safety Report 24964755 (Version 2)
Quarter: 2025Q1

REPORT INFORMATION
  Report Type: Spontaneous
  Country: US (occurrence: US)
  Receive Date: 20250213
  Receipt Date: 20250227
  Transmission Date: 20250409
  Serious: Yes (Hospitalization)
  Sender: ALVOGEN
  Company Number: US-ALVOGEN-2025096087

PATIENT
  Sex: Female

DRUGS (2)
  1. BUPRENORPHINE AND NALOXONE [Suspect]
     Active Substance: BUPRENORPHINE HYDROCHLORIDE\NALOXONE HYDROCHLORIDE
     Indication: Dependence
     Dosage: 8/2 MG, SINCE YEARS
     Route: 060
  2. BUPRENORPHINE AND NALOXONE [Suspect]
     Active Substance: BUPRENORPHINE HYDROCHLORIDE\NALOXONE HYDROCHLORIDE
     Indication: Dependence
     Dosage: 8-2 MG, EXPIRATION DATE: JUN-2026, TIME STAMP: L541971821 ?SN# 354715895563
     Route: 060
     Dates: start: 20250102

REACTIONS (9)
  - Emotional distress [Unknown]
  - Epistaxis [Unknown]
  - Burning sensation [Unknown]
  - Renal pain [Recovered/Resolved]
  - Headache [Unknown]
  - Back pain [Recovered/Resolved]
  - Product taste abnormal [Unknown]
  - Product quality issue [Unknown]
  - Wrong technique in product usage process [Unknown]

NARRATIVE: CASE EVENT DATE: 20250102
